FAERS Safety Report 7519111-7 (Version None)
Quarter: 2011Q2

REPORT INFORMATION
  Report Type: 
  Country: None (occurrence: None)
  Receive Date: 20110602
  Receipt Date: 20110519
  Transmission Date: 20111010
  Serious: Yes (Other)
  Sender: FDA-Public Use
  Company Number: PHHY2011FR42672

PATIENT
  Sex: Male

DRUGS (1)
  1. GLEEVEC [Suspect]
     Indication: EOSINOPHILIA
     Dosage: 100 MG, DAILY
     Route: 048
     Dates: start: 20100801

REACTIONS (1)
  - SUICIDE ATTEMPT [None]
